FAERS Safety Report 5367180-5 (Version None)
Quarter: 2007Q2

REPORT INFORMATION
  Report Type: 
  Country: None (occurrence: None)
  Receive Date: 20070620
  Receipt Date: 20070620
  Transmission Date: 20071010
  Serious: Yes (Hospitalization)
  Sender: FDA-Public Use
  Company Number: None

PATIENT
  Age: 57 Year
  Sex: Male

DRUGS (2)
  1. METOPROLOL SUCCINATE [Suspect]
     Indication: CORONARY ARTERY DISEASE
     Dosage: 50MG EVERY DAY PO
     Route: 048
     Dates: start: 20060119, end: 20070506
  2. DIGOXIN [Suspect]
     Indication: CORONARY ARTERY DISEASE
     Dosage: .125MG EVERY DAY PO
     Route: 048

REACTIONS (4)
  - BRADYCARDIA [None]
  - DIZZINESS [None]
  - HYPOTENSION [None]
  - NODAL ARRHYTHMIA [None]
